FAERS Safety Report 10740534 (Version 1)
Quarter: 2015Q1

REPORT INFORMATION
  Report Type: Report from Study
  Country: US (occurrence: US)
  Receive Date: 20150127
  Receipt Date: 20150127
  Transmission Date: 20150721
  Serious: Yes (Other)
  Sender: FDA-Public Use
  Company Number: US-AMGEN-USASL2015006968

PATIENT
  Age: 4 Year
  Sex: Female

DRUGS (3)
  1. NAPROXIN                           /00256201/ [Suspect]
     Active Substance: NAPROXEN
     Indication: ABDOMINAL PAIN
  2. NAPROXIN /00256201/ [Suspect]
     Active Substance: NAPROXEN
     Indication: ARTHRALGIA
     Dosage: UNK UNK, BID, MORNING AND NIGHT AT SEVEN O^CLOCK
     Route: 065
  3. ENBREL [Suspect]
     Active Substance: ETANERCEPT
     Indication: JUVENILE IDIOPATHIC ARTHRITIS
     Dosage: 0.3 MG, 2 TIMES/WK
     Route: 065
     Dates: start: 20140814

REACTIONS (7)
  - Pyrexia [Not Recovered/Not Resolved]
  - Aggression [Unknown]
  - Drug effect decreased [Not Recovered/Not Resolved]
  - Mood altered [Unknown]
  - Steroid withdrawal syndrome [Not Recovered/Not Resolved]
  - Abdominal pain [Not Recovered/Not Resolved]
  - Arthralgia [Not Recovered/Not Resolved]

NARRATIVE: CASE EVENT DATE: 201501
